FAERS Safety Report 19899493 (Version 1)
Quarter: 2021Q3

REPORT INFORMATION
  Report Type: Spontaneous
  Country: US (occurrence: US)
  Receive Date: 20210929
  Receipt Date: 20210929
  Transmission Date: 20211014
  Serious: No
  Sender: FDA-Public Use
  Company Number: None

PATIENT
  Age: 65 Year
  Sex: Female

DRUGS (1)
  1. ERLOTINIB TAB 25MG [Suspect]
     Active Substance: ERLOTINIB
     Route: 048
     Dates: start: 202005

REACTIONS (1)
  - Bladder neoplasm [None]

NARRATIVE: CASE EVENT DATE: 20210929
